FAERS Safety Report 7126650-X (Version None)
Quarter: 2010Q4

REPORT INFORMATION
  Report Type: 
  Country: None (occurrence: None)
  Receive Date: 20101129
  Receipt Date: 20101122
  Transmission Date: 20110411
  Serious: Yes (Hospitalization)
  Sender: FDA-Public Use
  Company Number: PHHO2010FR17815

PATIENT
  Sex: Male
  Weight: 33 kg

DRUGS (2)
  1. STI571/CGP57148B T35717+CAPS [Suspect]
     Indication: ACUTE LYMPHOCYTIC LEUKAEMIA
     Dosage: 350 MG, DAILY
     Route: 048
     Dates: start: 20100909
  2. PURINETHOL [Concomitant]

REACTIONS (7)
  - ABDOMINAL PAIN [None]
  - ASCITES [None]
  - FEBRILE BONE MARROW APLASIA [None]
  - GASTROINTESTINAL INFLAMMATION [None]
  - MUSCLE RIGIDITY [None]
  - NAUSEA [None]
  - VOMITING [None]
